FAERS Safety Report 8323426-2 (Version None)
Quarter: 2012Q2

REPORT INFORMATION
  Report Type: 
  Country: None (occurrence: None)
  Receive Date: 20120430
  Receipt Date: 20100827
  Transmission Date: 20120825
  Serious: Yes (Hospitalization)
  Sender: FDA-Public Use
  Company Number: PHHY2010CH56296

PATIENT
  Sex: Female

DRUGS (10)
  1. PENTASA [Concomitant]
     Dosage: 3 G, UNK
  2. LISIPRIL [Concomitant]
  3. VITAMIN D [Concomitant]
     Dosage: UNK UKN, UNK
  4. ATORVASTATIN CALCIUM [Concomitant]
     Dosage: UNK UKN, UNK
  5. ZOLEDRONOC ACID [Suspect]
     Indication: OSTEOPOROSIS
     Dosage: UNK UKN, UNK
     Route: 042
     Dates: start: 20090828
  6. ASPIRIN [Concomitant]
     Dosage: DAILY DOSE
  7. ACTONEL [Concomitant]
     Indication: OSTEOPOROSIS
     Dosage: WEEKLY
     Dates: start: 20060101, end: 20090101
  8. REMERON [Concomitant]
     Dosage: 15 MG
  9. ZESTRIL [Concomitant]
     Dosage: 12.5 MG, UNK
  10. DICLOFENAC SODIUM [Concomitant]
     Dosage: UNK UKN, UNK

REACTIONS (5)
  - FALL [None]
  - JAW FRACTURE [None]
  - OSTEONECROSIS OF JAW [None]
  - PAIN [None]
  - WEIGHT DECREASED [None]
